FAERS Safety Report 13257054 (Version 1)
Quarter: 2017Q1

REPORT INFORMATION
  Report Type: Spontaneous
  Country: PL (occurrence: PL)
  Receive Date: 20170221
  Receipt Date: 20170221
  Transmission Date: 20170428
  Serious: Yes (Hospitalization, Other)
  Sender: FDA-Public Use
  Company Number: PL-ASTRAZENECA-2017SE16979

PATIENT
  Age: 77 Year
  Sex: Male

DRUGS (1)
  1. BRILIQUE [Suspect]
     Active Substance: TICAGRELOR
     Route: 048
     Dates: start: 20170201, end: 20170205

REACTIONS (6)
  - Haemoglobin decreased [Unknown]
  - Vascular stent restenosis [Unknown]
  - Haematuria [Unknown]
  - Ischaemic stroke [Unknown]
  - Rash [Unknown]
  - Haemoptysis [Unknown]

NARRATIVE: CASE EVENT DATE: 20170208
